FAERS Safety Report 19077197 (Version 1)
Quarter: 2021Q1

REPORT INFORMATION
  Report Type: Other
  Country: NL (occurrence: NL)
  Receive Date: 20210331
  Receipt Date: 20210331
  Transmission Date: 20210420
  Serious: Yes (Other)
  Sender: FDA-Public Use
  Company Number: NL-WES PHARMA INC-2108652

PATIENT
  Sex: Female

DRUGS (1)
  1. METHYLPHENIDATE HYDROCHLORIDE. [Suspect]
     Active Substance: METHYLPHENIDATE HYDROCHLORIDE
     Indication: ATTENTION DEFICIT HYPERACTIVITY DISORDER
     Route: 065

REACTIONS (1)
  - Delusion of parasitosis [Recovered/Resolved]
